FAERS Safety Report 25164645 (Version 1)
Quarter: 2025Q2

REPORT INFORMATION
  Report Type: Report from Study
  Country: US (occurrence: US)
  Receive Date: 20250406
  Receipt Date: 20250406
  Transmission Date: 20250717
  Serious: Yes (Hospitalization)
  Sender: ABBVIE
  Company Number: US-ABBVIE-6207356

PATIENT
  Age: 64 Year
  Sex: Female

DRUGS (1)
  1. CREON [Suspect]
     Active Substance: PANCRELIPASE AMYLASE\PANCRELIPASE LIPASE\PANCRELIPASE PROTEASE
     Indication: Product used for unknown indication
     Route: 048
     Dates: start: 20240401

REACTIONS (5)
  - Dehydration [Recovered/Resolved]
  - Condition aggravated [Recovering/Resolving]
  - Blood potassium decreased [Recovering/Resolving]
  - Pancreatectomy [Not Recovered/Not Resolved]
  - Product administration error [Recovering/Resolving]

NARRATIVE: CASE EVENT DATE: 20250201
